FAERS Safety Report 6508209-8 (Version None)
Quarter: 2009Q4

REPORT INFORMATION
  Report Type: 
  Country: None (occurrence: None)
  Receive Date: 20091221
  Receipt Date: 20081217
  Transmission Date: 20100525
  Serious: No
  Sender: FDA-Public Use
  Company Number: US-ASTRAZENECA-2008UW28218

PATIENT
  Age: 80 Year
  Sex: Female
  Weight: 68 kg

DRUGS (3)
  1. CRESTOR [Suspect]
     Indication: BLOOD CHOLESTEROL INCREASED
     Dosage: CUTS 5 MG TABLET INTO THIRDS
     Route: 048
  2. COUMADIN [Concomitant]
  3. A LOT OF MEDICATION [Concomitant]

REACTIONS (1)
  - ILL-DEFINED DISORDER [None]
